FAERS Safety Report 24763231 (Version 1)
Quarter: 2024Q4

REPORT INFORMATION
  Report Type: Report from Study
  Country: US (occurrence: US)
  Receive Date: 20241222
  Receipt Date: 20241222
  Transmission Date: 20250114
  Serious: Yes (Hospitalization, Other)
  Sender: ABBVIE
  Company Number: US-ABBVIE-6053674

PATIENT
  Age: 69 Year
  Sex: Female

DRUGS (1)
  1. HUMIRA [Suspect]
     Active Substance: ADALIMUMAB
     Indication: Product used for unknown indication
     Dosage: CITRATE FREE
     Route: 058
     Dates: start: 20240604

REACTIONS (3)
  - Cardiac valve disease [Recovering/Resolving]
  - Cardiac failure congestive [Recovering/Resolving]
  - Pulmonary oedema [Unknown]

NARRATIVE: CASE EVENT DATE: 20240101
